FAERS Safety Report 5494936-0 (Version None)
Quarter: 2007Q4

REPORT INFORMATION
  Report Type: 
  Country: None (occurrence: None)
  Receive Date: 20071024
  Receipt Date: 20071022
  Transmission Date: 20080405
  Serious: Yes (Hospitalization)
  Sender: FDA-Public Use
  Company Number: A0688953A

PATIENT
  Age: 20 Year
  Sex: Male

DRUGS (1)
  1. LAMICTAL [Suspect]
     Dosage: 200MG PER DAY
     Route: 048
     Dates: start: 20030101

REACTIONS (3)
  - CONVULSION [None]
  - PHYSICAL ASSAULT [None]
  - RESPIRATORY ARREST [None]
